FAERS Safety Report 8048028-7 (Version None)
Quarter: 2012Q1

REPORT INFORMATION
  Report Type: 
  Country: None (occurrence: None)
  Receive Date: 20120117
  Receipt Date: 20120106
  Transmission Date: 20120608
  Serious: Yes (Other)
  Sender: FDA-Public Use
  Company Number: BR-AMGEN-BRASP2012001566

PATIENT
  Age: 16 Year
  Sex: Female
  Weight: 72 kg

DRUGS (3)
  1. ENBREL [Suspect]
     Indication: JUVENILE ARTHRITIS
     Dosage: 50 MG, WEEKLY
     Route: 058
     Dates: start: 20101001
  2. SELENE                             /00541901/ [Concomitant]
     Indication: CONTRACEPTIVE CAP
     Dosage: UNK
  3. ARAVA [Concomitant]
     Dosage: 20 MG, 1X/DAY

REACTIONS (6)
  - BRONCHITIS [None]
  - CELLULITIS [None]
  - URINARY TRACT INFECTION [None]
  - HAEMATURIA [None]
  - INJECTION SITE INDURATION [None]
  - PHARYNGITIS [None]
